FAERS Safety Report 5680123-X (Version None)
Quarter: 2008Q1

REPORT INFORMATION
  Report Type: 
  Country: None (occurrence: None)
  Receive Date: 20080326
  Receipt Date: 20080312
  Transmission Date: 20080703
  Serious: Yes (Other)
  Sender: FDA-Public Use
  Company Number: BR-BAYER-200812517LA

PATIENT
  Age: 21 Year
  Sex: Female

DRUGS (1)
  1. BETAFERON [Suspect]
     Indication: MULTIPLE SCLEROSIS
     Route: 058
     Dates: start: 20080201

REACTIONS (3)
  - ANURIA [None]
  - PYREXIA [None]
  - URINARY TRACT INFECTION [None]
